FAERS Safety Report 23187235 (Version 2)
Quarter: 2023Q4

REPORT INFORMATION
  Report Type: Spontaneous
  Country: AU (occurrence: AU)
  Receive Date: 20231115
  Receipt Date: 20231201
  Transmission Date: 20240109
  Serious: Yes (Life-Threatening, Hospitalization, Other)
  Sender: FDA-Public Use
  Company Number: AU-BAYER-2023A163155

PATIENT
  Age: 66 Year
  Sex: Male
  Weight: 122 kg

DRUGS (1)
  1. GADOBUTROL [Suspect]
     Active Substance: GADOBUTROL
     Indication: Magnetic resonance imaging prostate
     Dosage: 13 ML, ONCE
     Route: 042
     Dates: start: 20231113, end: 20231113

REACTIONS (7)
  - Syncope [Recovering/Resolving]
  - Feeling hot [Recovering/Resolving]
  - Unresponsive to stimuli [Recovering/Resolving]
  - Illness [Recovering/Resolving]
  - Dyspnoea [Recovering/Resolving]
  - Multiple organ dysfunction syndrome [Recovering/Resolving]
  - Pulseless electrical activity [Recovering/Resolving]

NARRATIVE: CASE EVENT DATE: 20231113
